FAERS Safety Report 5794968-9 (Version None)
Quarter: 2008Q2

REPORT INFORMATION
  Report Type: 
  Country: None (occurrence: None)
  Receive Date: 20080630
  Receipt Date: 20080619
  Transmission Date: 20081010
  Serious: Yes (Death, Other)
  Sender: FDA-Public Use
  Company Number: JP-ROCHE-489938

PATIENT
  Age: 3 Year
  Sex: Male
  Weight: 13.5 kg

DRUGS (4)
  1. TAMIFLU [Suspect]
     Route: 065
     Dates: start: 20021216
  2. AMINOPHYLLIN [Concomitant]
     Dosage: IN 200 ML ELECTROLYTE SOLUTION
  3. PROCATEROL HCL [Concomitant]
  4. SODIUM CROMOGLYCATE [Concomitant]

REACTIONS (4)
  - BLOOD GLUCOSE INCREASED [None]
  - CARDIAC ARREST [None]
  - RESPIRATORY ARREST [None]
  - SUDDEN DEATH [None]
